FAERS Safety Report 6339012-X (Version None)
Quarter: 2009Q3

REPORT INFORMATION
  Report Type: 
  Country: None (occurrence: None)
  Receive Date: 20090821
  Receipt Date: 20090619
  Transmission Date: 20100115
  Serious: No
  Sender: FDA-Public Use
  Company Number: 8041838

PATIENT
  Age: 58 Year
  Sex: Male
  Weight: 63.6 kg

DRUGS (7)
  1. CIMZIA [Suspect]
     Indication: CROHN'S DISEASE
     Dosage: 400 MG SC
     Route: 058
     Dates: start: 20081022
  2. PREDNISONE TAB [Concomitant]
  3. PENTASA [Concomitant]
  4. NORVASC [Concomitant]
  5. NADOLOL [Concomitant]
  6. PRILOSEC [Concomitant]
  7. BENTYL [Concomitant]

REACTIONS (4)
  - DIARRHOEA [None]
  - NASOPHARYNGITIS [None]
  - RESPIRATORY TRACT INFECTION [None]
  - SINUSITIS [None]
